FAERS Safety Report 7961372-4 (Version None)
Quarter: 2011Q4

REPORT INFORMATION
  Report Type: 
  Country: None (occurrence: None)
  Receive Date: 20111121
  Receipt Date: 20110930
  Transmission Date: 20120403
  Serious: No
  Sender: FDA-Public Use
  Company Number: 1000024362

PATIENT
  Age: 64 Year
  Sex: Male

DRUGS (6)
  1. WELLBUTRIN (BUPROPION HYDROCHLORIDE) (BUPROPION HYDROCHLORIDE) [Concomitant]
  2. PRINIVIL (LISINOPRIL DIHYDRATE) (LISINOPRIL DIHYDRATE) [Concomitant]
  3. REVLIMID [Concomitant]
  4. ASPIRIN [Concomitant]
  5. NEXIUM [Concomitant]
  6. VIIBRYD [Suspect]
     Indication: DEPRESSION
     Dosage: 10 MG (10 MG, 1 IN 1 D), ORAL
     Route: 048
     Dates: start: 20110919, end: 20110925

REACTIONS (1)
  - EJACULATION DISORDER [None]
